FAERS Safety Report 25349455 (Version 1)
Quarter: 2025Q2

REPORT INFORMATION
  Report Type: Spontaneous
  Country: PT (occurrence: PT)
  Receive Date: 20250522
  Receipt Date: 20250522
  Transmission Date: 20250716
  Serious: Yes (Death, Other)
  Sender: JOHNSON AND JOHNSON
  Company Number: PT-JNJFOC-20250524483

PATIENT

DRUGS (8)
  1. TECLISTAMAB [Suspect]
     Active Substance: TECLISTAMAB
     Indication: Plasma cell myeloma
     Route: 058
  2. TECLISTAMAB [Suspect]
     Active Substance: TECLISTAMAB
     Route: 058
  3. TECLISTAMAB [Suspect]
     Active Substance: TECLISTAMAB
     Route: 058
  4. TECLISTAMAB [Suspect]
     Active Substance: TECLISTAMAB
     Dosage: 2ND DOSE(MORE THAN 28 DAYS)
     Route: 058
  5. TECLISTAMAB [Suspect]
     Active Substance: TECLISTAMAB
     Dosage: 2ND DOSE(MORE THAN 28 DAYS)
     Route: 058
  6. TECLISTAMAB [Suspect]
     Active Substance: TECLISTAMAB
     Dosage: MAINTENANCE DOSES ( B DAYS TO 62 DAYS)
     Route: 058
  7. TECLISTAMAB [Suspect]
     Active Substance: TECLISTAMAB
     Dosage: MAINTENANCE DOSES (63 DIN 11 DAYS)
     Route: 058
  8. TECLISTAMAB [Suspect]
     Active Substance: TECLISTAMAB
     Dosage: MAINTENANCE DOSES (MORE THAN 11 DAYS)
     Route: 058

REACTIONS (22)
  - Disease progression [Fatal]
  - Toxicity to various agents [Fatal]
  - Progressive multifocal leukoencephalopathy [Unknown]
  - Immune effector cell-associated neurotoxicity syndrome [Unknown]
  - Cytokine release syndrome [Unknown]
  - COVID-19 [Unknown]
  - Disease progression [Unknown]
  - Fungal infection [Unknown]
  - Cytomegalovirus infection [Unknown]
  - Human polyomavirus infection [Unknown]
  - Bacterial infection [Unknown]
  - Infection [Unknown]
  - Respiratory tract infection [Unknown]
  - Haematological infection [Unknown]
  - Gastrointestinal infection [Unknown]
  - Condition aggravated [Unknown]
  - Influenza [Unknown]
  - Influenza [Unknown]
  - Human herpesvirus 7 infection [Unknown]
  - Respiratory syncytial virus infection [Unknown]
  - Parapox virus infection [Unknown]
  - Product use issue [Unknown]
